FAERS Safety Report 8915018 (Version 1)
Quarter: 2012Q4

REPORT INFORMATION
  Report Type: 
  Country: RU (occurrence: RU)
  Receive Date: 20121116
  Receipt Date: 20121116
  Transmission Date: 20130627
  Serious: Yes (Life-Threatening, Hospitalization)
  Sender: FDA-Public Use
  Company Number: RU-ALEXION PHARMACEUTICALS INC.-A201202154

PATIENT
  Age: 6 Year
  Sex: Male
  Weight: 21 kg

DRUGS (8)
  1. SOLIRIS 300MG [Suspect]
     Indication: HAEMOLYTIC URAEMIC SYNDROME
     Dosage: 600 mg, qw
     Route: 042
     Dates: start: 20120831, end: 20120831
  2. SOLIRIS 300MG [Suspect]
     Dosage: 300 mg, qw
     Route: 042
     Dates: start: 20120907, end: 20120907
  3. SOLIRIS 300MG [Suspect]
     Dosage: 300 mg, q2w
     Route: 042
     Dates: start: 20120921, end: 20121019
  4. SOLIRIS 300MG [Suspect]
     Dosage: 600 mg, q2w
     Route: 042
     Dates: start: 20121101
  5. NORVASK [Concomitant]
     Indication: HYPERTENSION
     Route: 048
  6. HYDROCHLOROTHIAZIDE [Concomitant]
     Indication: HYPERTENSION
     Route: 048
  7. HYDROCHLOROTHIAZIDE [Concomitant]
     Indication: OEDEMA
  8. NIFEDIPINE [Concomitant]
     Indication: HYPERTENSION
     Route: 048

REACTIONS (3)
  - Respiratory failure [Recovered/Resolved with Sequelae]
  - Cardiac failure [Recovered/Resolved with Sequelae]
  - Upper respiratory tract infection [Recovered/Resolved with Sequelae]
